FAERS Safety Report 5787457-9 (Version None)
Quarter: 2008Q2

REPORT INFORMATION
  Report Type: 
  Country: None (occurrence: None)
  Receive Date: 20080623
  Receipt Date: 20080623
  Transmission Date: 20081010
  Serious: Yes (Hospitalization)
  Sender: FDA-Public Use
  Company Number: None

PATIENT
  Sex: Female
  Weight: 54.7 kg

DRUGS (7)
  1. TEMOZOLOMIDE [Suspect]
     Dosage: 4750 MG
  2. DECADRON [Concomitant]
  3. KEPPRA [Concomitant]
  4. PREVACID [Concomitant]
  5. PROCHLORPERAZINE [Concomitant]
  6. ZOFRAN [Concomitant]
  7. ZOLOFT [Concomitant]

REACTIONS (7)
  - CONVULSION [None]
  - HAEMOGLOBIN DECREASED [None]
  - LEUKOCYTOSIS [None]
  - MENORRHAGIA [None]
  - PLATELET COUNT DECREASED [None]
  - SYNCOPE [None]
  - WHITE BLOOD CELL COUNT DECREASED [None]
